FAERS Safety Report 4405370-6 (Version None)
Quarter: 2004Q3

REPORT INFORMATION
  Report Type: 
  Country: None (occurrence: None)
  Receive Date: 20040720
  Receipt Date: 20040629
  Transmission Date: 20050211
  Serious: Yes (Hospitalization)
  Sender: FDA-Public Use
  Company Number: DSA_60433_2004

PATIENT
  Age: 30 Year
  Sex: Female

DRUGS (6)
  1. DIHYDROERGOTAMINE MESYLATE [Suspect]
     Indication: MIGRAINE
     Dates: start: 20040613
  2. DESYREL [Concomitant]
  3. LUVOX [Concomitant]
  4. CYANOCOBALAMIN [Concomitant]
  5. ROHYPNOL [Concomitant]
  6. TERNELIN [Concomitant]

REACTIONS (1)
  - BLOOD PRESSURE SYSTOLIC DECREASED [None]
